FAERS Safety Report 25090744 (Version 1)
Quarter: 2025Q1

REPORT INFORMATION
  Report Type: Spontaneous
  Country: US (occurrence: US)
  Receive Date: 20250318
  Receipt Date: 20250318
  Transmission Date: 20250409
  Serious: No
  Sender: MERCK SHARP & DOHME LLC
  Company Number: US-009507513-2265241

PATIENT
  Sex: Female
  Weight: 59 kg

DRUGS (43)
  1. SOTATERCEPT-CSRK [Suspect]
     Active Substance: SOTATERCEPT-CSRK
  2. SOTATERCEPT-CSRK [Suspect]
     Active Substance: SOTATERCEPT-CSRK
  3. SOTATERCEPT-CSRK [Suspect]
     Active Substance: SOTATERCEPT-CSRK
  4. SOTATERCEPT-CSRK [Suspect]
     Active Substance: SOTATERCEPT-CSRK
  5. FISH OIL [Concomitant]
     Active Substance: FISH OIL
  6. PLAQUENIL [Concomitant]
     Active Substance: HYDROXYCHLOROQUINE SULFATE
  7. MOMETASONE FUROATE [Concomitant]
     Active Substance: MOMETASONE FUROATE
  8. VITAMIN D3 [Concomitant]
     Active Substance: CHOLECALCIFEROL
  9. POTASSIUM CHLORIDE [Concomitant]
     Active Substance: POTASSIUM CHLORIDE
  10. METOPROLOL SUCCINATE [Concomitant]
     Active Substance: METOPROLOL SUCCINATE
  11. ALBUTEROL\IPRATROPIUM [Concomitant]
     Active Substance: ALBUTEROL\IPRATROPIUM
  12. PREDNISONE [Concomitant]
     Active Substance: PREDNISONE
  13. ZYRTEC [Concomitant]
     Active Substance: CETIRIZINE HYDROCHLORIDE
  14. DEXILANT [Concomitant]
     Active Substance: DEXLANSOPRAZOLE
  15. REMODULIN [Suspect]
     Active Substance: TREPROSTINIL
     Indication: Pulmonary arterial hypertension
     Route: 041
     Dates: start: 20191023
  16. REMODULIN [Suspect]
     Active Substance: TREPROSTINIL
     Indication: Pulmonary arterial hypertension
     Route: 041
  17. CELEBREX [Concomitant]
     Active Substance: CELECOXIB
  18. CRESTOR [Concomitant]
     Active Substance: ROSUVASTATIN CALCIUM
  19. FOLIC ACID [Concomitant]
     Active Substance: FOLIC ACID
  20. ALBUTEROL SULFATE [Concomitant]
     Active Substance: ALBUTEROL SULFATE
  21. BREO ELLIPTA [Concomitant]
     Active Substance: FLUTICASONE FUROATE\VILANTEROL TRIFENATATE
  22. ENBREL [Concomitant]
     Active Substance: ETANERCEPT
  23. LASIX [Concomitant]
     Active Substance: FUROSEMIDE
  24. OPSUMIT [Concomitant]
     Active Substance: MACITENTAN
  25. EAR WAX REMOVAL [Concomitant]
     Active Substance: CARBAMIDE PEROXIDE
  26. VITAMINS [Concomitant]
     Active Substance: VITAMINS
  27. FLUTICASONE PROPIONATE [Concomitant]
     Active Substance: FLUTICASONE PROPIONATE
  28. NEXIUM [Concomitant]
     Active Substance: ESOMEPRAZOLE MAGNESIUM
  29. ASPIRIN [Concomitant]
     Active Substance: ASPIRIN
  30. TRELEGY ELLIPTA [Concomitant]
     Active Substance: FLUTICASONE FUROATE\UMECLIDINIUM BROMIDE\VILANTEROL TRIFENATATE
  31. METHOTREXATE [Concomitant]
     Active Substance: METHOTREXATE
  32. RESTASIS [Concomitant]
     Active Substance: CYCLOSPORINE
  33. TRAMADOL HCL [Concomitant]
     Active Substance: TRAMADOL HYDROCHLORIDE
  34. ADCIRCA [Concomitant]
     Active Substance: TADALAFIL
  35. OXYGEN [Concomitant]
     Active Substance: OXYGEN
  36. LEVOTHYROXINE SODIUM [Concomitant]
     Active Substance: LEVOTHYROXINE SODIUM
  37. BACTRIM [Concomitant]
     Active Substance: SULFAMETHOXAZOLE\TRIMETHOPRIM
  38. DIGOXIN [Concomitant]
     Active Substance: DIGOXIN
  39. ONDANSETRON [Concomitant]
     Active Substance: ONDANSETRON
  40. METOPROLOL TARTRATE [Concomitant]
     Active Substance: METOPROLOL TARTRATE
  41. AMITRIPTYLINE HYDROCHLORIDE [Concomitant]
     Active Substance: AMITRIPTYLINE HYDROCHLORIDE
  42. PATADAY [Concomitant]
     Active Substance: OLOPATADINE HYDROCHLORIDE
  43. BENZONATATE [Concomitant]
     Active Substance: BENZONATATE

REACTIONS (1)
  - Illness [Unknown]
